FAERS Safety Report 14017218 (Version 1)
Quarter: 2017Q3

REPORT INFORMATION
  Report Type: Report from Study
  Country: US (occurrence: US)
  Receive Date: 20170927
  Receipt Date: 20170927
  Transmission Date: 20171128
  Serious: Yes (Hospitalization)
  Sender: FDA-Public Use
  Company Number: US-EXELIXIS-XL18417010617

PATIENT
  Age: 68 Year
  Sex: Male
  Weight: 66.21 kg

DRUGS (1)
  1. XL184 [Suspect]
     Active Substance: CABOZANTINIB
     Indication: PAPILLARY THYROID CANCER
     Dosage: 60 MG, QD
     Route: 048
     Dates: start: 20170504

REACTIONS (1)
  - Pleuritic pain [Unknown]
